FAERS Safety Report 8323130-0 (Version None)
Quarter: 2012Q1

REPORT INFORMATION
  Report Type: 
  Country: None (occurrence: None)
  Receive Date: 20120315
  Receipt Date: 20110317
  Transmission Date: 20120608
  Serious: No
  Sender: FDA-Public Use
  Company Number: PHHY2011US23433

PATIENT
  Age: 19 Year
  Sex: Female

DRUGS (2)
  1. GILENYA [Suspect]
     Dosage: 0.5 MG, QD, ORAL
     Route: 048
     Dates: start: 20110314
  2. LOESTRIN 1.5/30 [Concomitant]

REACTIONS (3)
  - DYSPHONIA [None]
  - DYSPHAGIA [None]
  - OROPHARYNGEAL PAIN [None]
